FAERS Safety Report 7633967-9 (Version None)
Quarter: 2011Q3

REPORT INFORMATION
  Report Type: 
  Country: None (occurrence: None)
  Receive Date: 20110725
  Receipt Date: 20110714
  Transmission Date: 20111222
  Serious: Yes (Hospitalization)
  Sender: FDA-Public Use
  Company Number: JP-JNJFOC-20101208601

PATIENT
  Sex: Female
  Weight: 42 kg

DRUGS (10)
  1. REMICADE [Suspect]
     Route: 042
     Dates: start: 20091127, end: 20100122
  2. ISONIAZID [Concomitant]
     Indication: PRODUCT USED FOR UNKNOWN INDICATION
     Route: 048
     Dates: start: 20091016, end: 20100909
  3. LOXONIN [Concomitant]
     Indication: MULTICENTRIC RETICULOHISTIOCYTOSIS
     Route: 048
     Dates: start: 20091008, end: 20100218
  4. REMICADE [Suspect]
     Route: 042
     Dates: start: 20091015
  5. RHEUMATREX [Suspect]
     Indication: MULTICENTRIC RETICULOHISTIOCYTOSIS
     Route: 048
     Dates: start: 20091015, end: 20100122
  6. MUCOSTA [Concomitant]
     Indication: GASTROINTESTINAL DISORDER THERAPY
     Route: 048
     Dates: start: 20091008, end: 20100218
  7. REMICADE [Suspect]
     Indication: MULTICENTRIC RETICULOHISTIOCYTOSIS
     Route: 042
     Dates: start: 20100604
  8. REMICADE [Suspect]
     Route: 042
     Dates: start: 20091030
  9. PREDNISOLONE [Suspect]
     Indication: MULTICENTRIC RETICULOHISTIOCYTOSIS
     Route: 048
     Dates: end: 20100128
  10. ALENDRONATE SODIUM [Concomitant]
     Indication: OSTEOPOROSIS

REACTIONS (1)
  - PNEUMOCYSTIS JIROVECI PNEUMONIA [None]
